FAERS Safety Report 9022479 (Version 1)
Quarter: 2013Q1

REPORT INFORMATION
  Report Type: Spontaneous
  Country: US (occurrence: US)
  Receive Date: 20130118
  Receipt Date: 20130118
  Transmission Date: 20140127
  Serious: No
  Sender: FDA-Public Use
  Company Number: US-PFIZER INC-2013022343

PATIENT
  Sex: Male

DRUGS (3)
  1. LYRICA [Suspect]
     Dosage: 75 MG, DAILY
     Dates: start: 201301
  2. LYRICA [Interacting]
     Dosage: 75 MG, 2X/DAY
  3. GLIMEPIRIDE [Interacting]
     Indication: DIABETES MELLITUS
     Dosage: 1 MG, DAILY

REACTIONS (2)
  - Drug interaction [Unknown]
  - Blood glucose increased [Unknown]
